FAERS Safety Report 8853395 (Version 1)
Quarter: 2012Q4

REPORT INFORMATION
  Report Type: 
  Country: US (occurrence: US)
  Receive Date: 20121022
  Receipt Date: 20121022
  Transmission Date: 20130627
  Serious: No
  Sender: FDA-Public Use
  Company Number: US-BAYER-2012-110098

PATIENT
  Age: 46 Year
  Sex: Female
  Weight: 70.3 kg

DRUGS (6)
  1. ALEVE CAPLET/TABLET,MIDOL EXTENDED RELIEF CAPLET [Suspect]
     Indication: ANALGESIC THERAPY
     Dosage: 1 DF, TID
     Route: 048
  2. ZOFRAN [Concomitant]
  3. ACIDOPHILUS [Concomitant]
  4. KELP [Concomitant]
  5. TRENTAL [Concomitant]
  6. MULTIVITAMINS [Concomitant]

REACTIONS (1)
  - Headache [Recovered/Resolved]
